FAERS Safety Report 8266047-2 (Version None)
Quarter: 2012Q1

REPORT INFORMATION
  Report Type: 
  Country: None (occurrence: None)
  Receive Date: 20120327
  Receipt Date: 20091016
  Transmission Date: 20120608
  Serious: Yes (Other)
  Sender: FDA-Public Use
  Company Number: PHEH2009US12503

PATIENT
  Age: 74 Year
  Sex: Female

DRUGS (11)
  1. PREMARIN [Concomitant]
  2. HYDROCHLOROTHIAZIDE [Concomitant]
  3. CHONDROITIN A (CHONDROITIN SULFATE SODIUM) [Concomitant]
  4. ASCORBIC ACID [Concomitant]
  5. GLEEVEC [Suspect]
     Dosage: 400 MG, QD, ORAL
     Route: 048
  6. GLUCOSAMINE (GLUCOSAMINE) [Concomitant]
  7. B COMPLEX (NICOTINAMIDE, PYRIDOXINE HYDROCHLORIDE, RIBOFLAVIN, THIAMIN [Concomitant]
  8. MULTIVITAMINS, PLAIN (NO INGREDIENTS/SBSTANCES) [Concomitant]
  9. LEXAPRO [Concomitant]
  10. THYROID TAB [Concomitant]
  11. POTASSIUM CHLORIDE [Concomitant]

REACTIONS (3)
  - DRUG INEFFECTIVE [None]
  - VOMITING [None]
  - DISEASE PROGRESSION [None]
